FAERS Safety Report 5083983-9 (Version None)
Quarter: 2006Q3

REPORT INFORMATION
  Report Type: 
  Country: None (occurrence: None)
  Receive Date: 20060814
  Receipt Date: 20060801
  Transmission Date: 20061208
  Serious: Yes (Hospitalization)
  Sender: FDA-Public Use
  Company Number: 2006085817

PATIENT
  Age: 78 Year
  Sex: Male
  Weight: 70 kg

DRUGS (8)
  1. SUTENT [Suspect]
     Indication: RENAL CELL CARCINOMA STAGE UNSPECIFIED
     Dosage: SEE IMAGE
     Route: 048
     Dates: start: 20060410, end: 20060503
  2. SUTENT [Suspect]
     Indication: RENAL CELL CARCINOMA STAGE UNSPECIFIED
     Dosage: SEE IMAGE
     Route: 048
     Dates: start: 20060605, end: 20060628
  3. DORZOLAMIDE (DORZOLAMIDE) [Concomitant]
  4. LATANOPROST [Concomitant]
  5. CLOBETASOL PROPIONATE [Concomitant]
  6. BETNOVATE (BETAMETHASONE) [Concomitant]
  7. EXOREX (COAL TAR) [Concomitant]
  8. ACETAMINOPHEN [Concomitant]

REACTIONS (21)
  - AREFLEXIA [None]
  - ARTHRALGIA [None]
  - CERVICAL CORD COMPRESSION [None]
  - DENERVATION ATROPHY [None]
  - HYPONATRAEMIA [None]
  - HYPOTONIA [None]
  - INFLAMMATION [None]
  - INTERVERTEBRAL DISC SPACE NARROWING [None]
  - LUMBAR RADICULOPATHY [None]
  - MOTOR NEURONE DISEASE [None]
  - MUSCLE SPASMS [None]
  - MUSCULAR WEAKNESS [None]
  - MYOPATHY [None]
  - MYOSITIS [None]
  - NERVE ROOT COMPRESSION [None]
  - PAIN IN EXTREMITY [None]
  - PLATELET COUNT DECREASED [None]
  - POLYNEUROPATHY IN MALIGNANT DISEASE [None]
  - PSORIASIS [None]
  - SCIATICA [None]
  - SERUM FERRITIN INCREASED [None]
